FAERS Safety Report 9052189 (Version 5)
Quarter: 2013Q2

REPORT INFORMATION
  Report Type: Spontaneous
  Country: US (occurrence: US)
  Receive Date: 20130206
  Receipt Date: 20130515
  Transmission Date: 20140414
  Serious: Yes (Hospitalization, Other)
  Sender: FDA-Public Use
  Company Number: US-BIOGENIDEC-2013BI011064

PATIENT
  Age: 44 Year
  Sex: Female

DRUGS (17)
  1. TYSABRI [Suspect]
     Indication: MULTIPLE SCLEROSIS
     Route: 042
     Dates: start: 20080303, end: 20121027
  2. OXYCONTIN [Concomitant]
  3. DIAZEPAM [Concomitant]
  4. LYRICA [Concomitant]
  5. OXYCODONE AND ACETAMINOPHEN [Concomitant]
  6. ALPRAZOLAM [Concomitant]
  7. BENADRYL [Concomitant]
  8. CALCIUM AND VITAMIN D [Concomitant]
  9. PROVIGIL [Concomitant]
     Route: 048
  10. VENLAFAXINE [Concomitant]
     Route: 048
  11. PREMARIN [Concomitant]
  12. VESICARE [Concomitant]
     Route: 048
  13. LANSOPRAZOLE [Concomitant]
     Route: 048
  14. CLEOCIN [Concomitant]
     Route: 048
  15. PROMETHAZINE [Concomitant]
  16. DIFLUCAN [Concomitant]
  17. MACROBID [Concomitant]
     Route: 048

REACTIONS (6)
  - Progressive multifocal leukoencephalopathy [Unknown]
  - Multiple sclerosis relapse [Unknown]
  - Lymphoma [Unknown]
  - Immune reconstitution inflammatory syndrome [Unknown]
  - Convulsion [Unknown]
  - Pyrexia [Unknown]
